FAERS Safety Report 9061592 (Version 1)
Quarter: 2013Q1

REPORT INFORMATION
  Report Type: Spontaneous
  Country: US (occurrence: US)
  Receive Date: 20130204
  Receipt Date: 20130204
  Transmission Date: 20140127
  Serious: Yes (Other)
  Sender: FDA-Public Use
  Company Number: PHEH2012US014407

PATIENT
  Age: 77 None
  Sex: Male

DRUGS (2)
  1. GLEEVEC [Suspect]
     Indication: CHRONIC MYELOID LEUKAEMIA
     Dosage: 600 MG, DAILY (400 MG AND 200 MG TABLETS)
     Route: 048
     Dates: start: 20120315
  2. GLEEVEC [Suspect]
     Dosage: 600 MG, DAILY (400 MG AND 200 MG TABLETS)
     Route: 048

REACTIONS (2)
  - Renal tubular necrosis [Unknown]
  - Dyspnoea [Unknown]
